FAERS Safety Report 13546253 (Version 1)
Quarter: 2017Q2

REPORT INFORMATION
  Report Type: Spontaneous
  Country: US (occurrence: US)
  Receive Date: 20170515
  Receipt Date: 20170515
  Transmission Date: 20170830
  Serious: No
  Sender: FDA-Public Use
  Company Number: US-SUNOVION-2017SUN001900

PATIENT

DRUGS (5)
  1. INVEGA [Suspect]
     Active Substance: PALIPERIDONE
     Dosage: UNK
  2. ATIVAN [Suspect]
     Active Substance: LORAZEPAM
  3. TRAZODONE [Suspect]
     Active Substance: TRAZODONE HYDROCHLORIDE
  4. MELATONIN [Suspect]
     Active Substance: MELATONIN
  5. LATUDA [Suspect]
     Active Substance: LURASIDONE HYDROCHLORIDE
     Dosage: UNK
     Route: 048

REACTIONS (3)
  - Sleep disorder [Unknown]
  - Depression [Unknown]
  - Mania [Unknown]
